FAERS Safety Report 11739988 (Version 2)
Quarter: 2015Q4

REPORT INFORMATION
  Report Type: Spontaneous
  Country: US (occurrence: US)
  Receive Date: 20151110
  Receipt Date: 20151120
  Transmission Date: 20160304
  Serious: No
  Sender: FDA-Public Use
  Company Number: US-ELI_LILLY_AND_COMPANY-US201111006686

PATIENT
  Age: 55 Year
  Sex: Female

DRUGS (4)
  1. FORTEO [Suspect]
     Active Substance: TERIPARATIDE
     Indication: OSTEOPOROSIS
     Dosage: 20 UG, QD
     Dates: start: 201109
  2. DURAGESIC [Concomitant]
     Active Substance: FENTANYL
  3. HYDROCODONE [Concomitant]
     Active Substance: HYDROCODONE
     Indication: BREAKTHROUGH PAIN
  4. FORTEO [Suspect]
     Active Substance: TERIPARATIDE
     Dosage: 20 UG, QD
     Dates: end: 20121105

REACTIONS (2)
  - Tooth loss [Unknown]
  - Tooth fracture [Unknown]

NARRATIVE: CASE EVENT DATE: 201208
